FAERS Safety Report 15157815 (Version 12)
Quarter: 2019Q2

REPORT INFORMATION
  Report Type: Spontaneous
  Country: US (occurrence: US)
  Receive Date: 20180718
  Receipt Date: 20190627
  Transmission Date: 20190711
  Serious: No
  Sender: FDA-Public Use
  Company Number: US-PFIZER INC-2018289217

PATIENT
  Age: 80 Year
  Sex: Female
  Weight: 85 kg

DRUGS (28)
  1. TRAMADOL. [Concomitant]
     Active Substance: TRAMADOL
     Indication: PAIN
     Dosage: UNK, 3X/DAY [STARTED OUT 1-3 TIMES A DAY]
     Dates: start: 201205
  2. BABY ASPIRIN [Concomitant]
     Active Substance: ASPIRIN
     Dosage: UNK
     Dates: start: 201602
  3. ATENOLOL. [Concomitant]
     Active Substance: ATENOLOL
     Indication: HYPERTENSION
     Dosage: 50 MG, 1X/DAY (TAKING FOR 3 YEARS)
     Route: 048
     Dates: start: 20140819
  4. TRAMADOL. [Concomitant]
     Active Substance: TRAMADOL
     Dosage: 2 DF, 3X/DAY [2 TABS 3 TIMES A DAY]
     Dates: start: 201602
  5. ALEVE [Concomitant]
     Active Substance: NAPROXEN SODIUM
     Indication: SLEEP DISORDER
     Dosage: 220 MG, UNK
  6. MELATONIN [Concomitant]
     Active Substance: MELATONIN
     Indication: SLEEP DISORDER
     Dosage: 10 MG, 1X/DAY
  7. XELJANZ XR [Suspect]
     Active Substance: TOFACITINIB CITRATE
     Indication: PAIN
     Dosage: 11 MG, 1X/DAY
     Route: 048
     Dates: start: 201805, end: 201805
  8. XELJANZ XR [Suspect]
     Active Substance: TOFACITINIB CITRATE
     Dosage: 11 MG, 1X/DAY
     Dates: start: 20180510, end: 201805
  9. FUROSEMIDE. [Concomitant]
     Active Substance: FUROSEMIDE
     Indication: BLOOD PRESSURE ABNORMAL
     Dosage: 40 MG, 1X/DAY (TAKING FOR 3 YEARS)
     Route: 048
     Dates: start: 201205
  10. LEVOTHYROXINE. [Concomitant]
     Active Substance: LEVOTHYROXINE
     Dosage: 0.37 MG, 1X/DAY (TAKING FOR ABOUT 5 YEARS)
     Route: 048
     Dates: start: 201205
  11. XELJANZ XR [Suspect]
     Active Substance: TOFACITINIB CITRATE
     Dosage: 11 MG, 1X/DAY
     Dates: start: 20180510, end: 201805
  12. ALEVE [Concomitant]
     Active Substance: NAPROXEN SODIUM
     Indication: PAIN
     Dosage: 200 MG, AS NEEDED (AT NIGHT)
     Route: 048
  13. LOSARTAN. [Concomitant]
     Active Substance: LOSARTAN
     Indication: BLOOD PRESSURE ABNORMAL
     Dosage: 25 MG, 1X/DAY
     Dates: start: 20181116
  14. LOSARTAN. [Concomitant]
     Active Substance: LOSARTAN
     Dosage: 25 MG, UNK [50MG PACK]
     Dates: start: 20190507
  15. XELJANZ XR [Suspect]
     Active Substance: TOFACITINIB CITRATE
     Indication: RHEUMATOID ARTHRITIS
     Dosage: 11 MG, 1X/DAY
     Route: 048
     Dates: start: 20180501, end: 201805
  16. XELJANZ XR [Suspect]
     Active Substance: TOFACITINIB CITRATE
     Indication: OSTEOARTHRITIS
     Dosage: 11 MG, DAILY
     Route: 048
     Dates: start: 20180510, end: 201805
  17. TRAMADOL. [Concomitant]
     Active Substance: TRAMADOL
     Dosage: 100 MG, AS NEEDED [3 TIMES DAILY AS NEEDED]
     Route: 048
     Dates: start: 20141211
  18. ALEVE [Concomitant]
     Active Substance: NAPROXEN SODIUM
     Dosage: UNK, AS NEEDED (ONLY WHEN NEEDED)
  19. VITAMIN D3 [Concomitant]
     Active Substance: CHOLECALCIFEROL
     Indication: VITAMIN SUPPLEMENTATION
     Dosage: 1000 IU, 1X/DAY
     Route: 048
     Dates: start: 2013
  20. ADVIL [IBUPROFEN] [Concomitant]
     Active Substance: IBUPROFEN
     Indication: PAIN
     Dosage: UNK, AS NEEDED
  21. ASPIRIN [ACETYLSALICYLIC ACID] [Concomitant]
     Active Substance: ASPIRIN
     Dosage: 325 MG, 1X/DAY
  22. VITAMIN D3 [Concomitant]
     Active Substance: CHOLECALCIFEROL
     Dosage: UNK
     Dates: start: 201110
  23. BABY ASPIRIN [Concomitant]
     Active Substance: ASPIRIN
     Dosage: 81 MG, 1X/DAY
     Route: 048
     Dates: start: 2013
  24. ADVIL LIQUI-GELS [Concomitant]
     Active Substance: IBUPROFEN
     Indication: PAIN IN EXTREMITY
  25. XELJANZ XR [Suspect]
     Active Substance: TOFACITINIB CITRATE
     Dosage: 11 MG, 1X/DAY
  26. FUROSEMIDE. [Concomitant]
     Active Substance: FUROSEMIDE
     Indication: POLYURIA
     Dosage: 40 MG, 1X/DAY
     Dates: start: 2014
  27. LEVOTHYROXINE. [Concomitant]
     Active Substance: LEVOTHYROXINE
     Indication: THYROID DISORDER
     Dosage: 0.137 MG, 1X/DAY
     Dates: start: 201110
  28. ADVIL LIQUI-GELS [Concomitant]
     Active Substance: IBUPROFEN
     Indication: PAIN
     Dosage: 200 MG, AS NEEDED

REACTIONS (8)
  - Musculoskeletal pain [Not Recovered/Not Resolved]
  - Fungal skin infection [Recovered/Resolved]
  - Therapeutic product effect incomplete [Unknown]
  - Headache [Recovered/Resolved]
  - Skin discolouration [Recovered/Resolved]
  - Macule [Recovered/Resolved]
  - Weight increased [Not Recovered/Not Resolved]
  - Condition aggravated [Not Recovered/Not Resolved]

NARRATIVE: CASE EVENT DATE: 2018
